FAERS Safety Report 14030085 (Version 3)
Quarter: 2017Q4

REPORT INFORMATION
  Report Type: Spontaneous
  Country: PL (occurrence: PL)
  Receive Date: 20171002
  Receipt Date: 20171019
  Transmission Date: 20180321
  Serious: Yes (Hospitalization, Other)
  Sender: FDA-Public Use
  Company Number: PL-GILEAD-2017-0295516

PATIENT
  Age: 55 Year
  Sex: Male
  Weight: 100 kg

DRUGS (6)
  1. FUROSEMID                          /00032601/ [Concomitant]
     Active Substance: FUROSEMIDE
  2. HARVONI [Suspect]
     Active Substance: LEDIPASVIR\SOFOSBUVIR
     Indication: CHRONIC HEPATITIS C
     Dosage: 1 DF, QD
     Route: 048
     Dates: start: 20170331, end: 20170918
  3. INSULATARD                         /00646002/ [Concomitant]
     Active Substance: INSULIN HUMAN
  4. HARVONI [Suspect]
     Active Substance: LEDIPASVIR\SOFOSBUVIR
     Indication: HEPATIC CIRRHOSIS
  5. NOVOMIX [Concomitant]
     Active Substance: INSULIN ASPART
  6. SPIRONOLACTONE. [Concomitant]
     Active Substance: SPIRONOLACTONE

REACTIONS (5)
  - Pancreatitis acute [Recovered/Resolved with Sequelae]
  - Hepatic failure [Recovering/Resolving]
  - Haemorrhagic diathesis [Recovering/Resolving]
  - Hepatic encephalopathy [Recovering/Resolving]
  - Splenic vein thrombosis [Unknown]

NARRATIVE: CASE EVENT DATE: 20170902
